FAERS Safety Report 4610309-4 (Version None)
Quarter: 2005Q1

REPORT INFORMATION
  Report Type: 
  Country: None (occurrence: None)
  Receive Date: 20050314
  Receipt Date: 20050216
  Transmission Date: 20050727
  Serious: Yes (Other)
  Sender: FDA-Public Use
  Company Number: 2004-00403

PATIENT
  Age: 66 Year
  Sex: Female
  Weight: 99.3 kg

DRUGS (5)
  1. VELCADE [Suspect]
     Indication: MULTIPLE MYELOMA
     Dosage: SEE IMAGE
     Route: 042
     Dates: start: 20040727, end: 20040806
  2. VELCADE [Suspect]
     Indication: MULTIPLE MYELOMA
     Dosage: SEE IMAGE
     Route: 042
     Dates: start: 20041012, end: 20050111
  3. VELCADE [Suspect]
     Indication: MULTIPLE MYELOMA
     Dosage: SEE IMAGE
     Route: 042
     Dates: start: 20041001
  4. DEXAMETHASONE [Concomitant]
  5. AREDIA [Concomitant]

REACTIONS (24)
  - ASPARTATE AMINOTRANSFERASE INCREASED [None]
  - AZOTAEMIA [None]
  - BETA 2 MICROGLOBULIN INCREASED [None]
  - BLOOD BILIRUBIN INCREASED [None]
  - BLOOD CREATININE INCREASED [None]
  - BLOOD GLUCOSE INCREASED [None]
  - BLOOD POTASSIUM INCREASED [None]
  - HAEMATOCRIT DECREASED [None]
  - IMPAIRED HEALING [None]
  - JAUNDICE [None]
  - MITRAL VALVE STENOSIS [None]
  - OEDEMA PERIPHERAL [None]
  - PARAESTHESIA [None]
  - PERICARDIAL EFFUSION [None]
  - PITTING OEDEMA [None]
  - PLASMACYTOMA [None]
  - PLATELET COUNT DECREASED [None]
  - RASH [None]
  - SKIN ULCER [None]
  - THERAPY NON-RESPONDER [None]
  - TRANSAMINASES INCREASED [None]
  - WEIGHT INCREASED [None]
  - WHITE BLOOD CELL COUNT DECREASED [None]
  - WOUND SECRETION [None]
